FAERS Safety Report 9513760 (Version 1)
Quarter: 2013Q3

REPORT INFORMATION
  Report Type: Report from Study
  Country: US (occurrence: US)
  Receive Date: 20130910
  Receipt Date: 20130910
  Transmission Date: 20140515
  Serious: Yes (Other)
  Sender: FDA-Public Use
  Company Number: US-ABBOTT-13P-163-1142417-00

PATIENT
  Sex: Female

DRUGS (2)
  1. CREON [Suspect]
     Indication: PANCREATIC INSUFFICIENCY
  2. ENZYMES [Concomitant]
     Indication: MALABSORPTION

REACTIONS (4)
  - Cystic fibrosis [Unknown]
  - Abdominal pain upper [Unknown]
  - Cough [Recovered/Resolved]
  - Dyspnoea [Recovered/Resolved]
